FAERS Safety Report 24758894 (Version 1)
Quarter: 2024Q4

REPORT INFORMATION
  Report Type: Spontaneous
  Country: GB (occurrence: GB)
  Receive Date: 20241220
  Receipt Date: 20241220
  Transmission Date: 20250114
  Serious: Yes (Other)
  Sender: ACCORD
  Company Number: None

PATIENT
  Sex: Female
  Weight: 65 kg

DRUGS (8)
  1. AMLODIPINE [Suspect]
     Active Substance: AMLODIPINE BESYLATE
     Indication: Hypertension
     Dosage: 5MG ONCE DAILY
     Dates: start: 20240123, end: 20240917
  2. ASPIRIN [Concomitant]
     Active Substance: ASPIRIN
     Indication: Myocardial infarction
     Dates: start: 20230123
  3. ATORVASTATIN [Concomitant]
     Active Substance: ATORVASTATIN
     Indication: Myocardial infarction
     Dates: start: 20240123
  4. BISOPROLOL [Concomitant]
     Active Substance: BISOPROLOL
     Indication: Myocardial infarction
     Dates: start: 20240123
  5. CANDESARTAN [Concomitant]
     Active Substance: CANDESARTAN
     Indication: Myocardial infarction
     Dates: start: 20240123
  6. CLOPIDOGREL [Concomitant]
     Active Substance: CLOPIDOGREL BISULFATE
     Indication: Myocardial infarction
     Dates: start: 20240123
  7. ESTRADIOL [Concomitant]
     Active Substance: ESTRADIOL
     Indication: Hormone replacement therapy
     Dates: start: 20060801
  8. DESLORATADINE [Concomitant]
     Active Substance: DESLORATADINE
     Indication: Sinusitis
     Dates: start: 20060224

REACTIONS (3)
  - Visual impairment [Recovered/Resolved]
  - Aphasia [Recovered/Resolved]
  - Abdominal distension [Recovered/Resolved]
